FAERS Safety Report 18880520 (Version 3)
Quarter: 2021Q3

REPORT INFORMATION
  Report Type: Spontaneous
  Country: US (occurrence: US)
  Receive Date: 20210211
  Receipt Date: 20210915
  Transmission Date: 20211014
  Serious: No
  Sender: FDA-Public Use
  Company Number: US-SA-2021SA045468

PATIENT
  Age: 88 Year
  Sex: Female

DRUGS (1)
  1. DUPIXENT [Suspect]
     Active Substance: DUPILUMAB
     Indication: DERMATITIS ATOPIC
     Dosage: 300 MG, QOW
     Route: 058
     Dates: start: 202001, end: 202105

REACTIONS (5)
  - COVID-19 [Unknown]
  - Pruritus [Unknown]
  - Eczema [Unknown]
  - Visual impairment [Unknown]
  - Pain of skin [Unknown]

NARRATIVE: CASE EVENT DATE: 2021
